FAERS Safety Report 4867441-X (Version None)
Quarter: 2005Q4

REPORT INFORMATION
  Report Type: 
  Country: None (occurrence: None)
  Receive Date: 20051228
  Receipt Date: 20051214
  Transmission Date: 20060501
  Serious: Yes (Hospitalization)
  Sender: FDA-Public Use
  Company Number: GB-MERCK-0512GBR00084

PATIENT
  Sex: Male

DRUGS (2)
  1. CANCIDAS [Suspect]
     Indication: FUNGAL INFECTION
     Route: 041
  2. [THERAPY UNSPECIFIED] [Concomitant]
     Route: 065

REACTIONS (2)
  - ADVERSE EVENT [None]
  - HYPOGLYCAEMIA [None]
